FAERS Safety Report 11234048 (Version 1)
Quarter: 2015Q3

REPORT INFORMATION
  Report Type: Report from Study
  Country: BR (occurrence: BR)
  Receive Date: 20150702
  Receipt Date: 20150702
  Transmission Date: 20151125
  Serious: Yes (Other)
  Sender: FDA-Public Use
  Company Number: BR-MERCK-1507BRA000655

PATIENT
  Sex: Male

DRUGS (1)
  1. DAPTOMYCIN. [Suspect]
     Active Substance: DAPTOMYCIN
     Indication: ENDOCARDITIS
     Dosage: 8 MG/KG, QD
     Route: 065

REACTIONS (5)
  - Pyrexia [Recovered/Resolved]
  - Disease recurrence [Recovered/Resolved]
  - Apallic syndrome [Recovered/Resolved]
  - Endocarditis [Recovered/Resolved]
  - Drug ineffective [Recovered/Resolved]
